FAERS Safety Report 7420693-4 (Version None)
Quarter: 2011Q2

REPORT INFORMATION
  Report Type: 
  Country: None (occurrence: None)
  Receive Date: 20110418
  Receipt Date: 20101108
  Transmission Date: 20111010
  Serious: Yes (Hospitalization, Other)
  Sender: FDA-Public Use
  Company Number: US-BAYER-200943132NA

PATIENT
  Sex: Female
  Weight: 88 kg

DRUGS (4)
  1. YASMIN [Suspect]
     Dosage: UNK
     Dates: start: 20031001, end: 20031101
  2. OCELLA [Suspect]
     Dosage: UNK
     Route: 048
     Dates: start: 20031001, end: 20031101
  3. ASCORBIC ACID [Concomitant]
     Dosage: UNK
     Dates: start: 20030101
  4. YAZ [Suspect]
     Dosage: UNK
     Route: 048
     Dates: start: 20031001, end: 20031101

REACTIONS (10)
  - PALPITATIONS [None]
  - RESPIRATORY FAILURE [None]
  - HEAD INJURY [None]
  - PULMONARY EMBOLISM [None]
  - DEEP VEIN THROMBOSIS [None]
  - LOSS OF CONSCIOUSNESS [None]
  - ASTHENIA [None]
  - IRON DEFICIENCY ANAEMIA [None]
  - SYNCOPE [None]
  - FALL [None]
